FAERS Safety Report 25559626 (Version 1)
Quarter: 2025Q3

REPORT INFORMATION
  Report Type: Spontaneous
  Country: US (occurrence: US)
  Receive Date: 20250715
  Receipt Date: 20250715
  Transmission Date: 20251021
  Serious: No
  Sender: NOVO NORDISK
  Company Number: US-NOVOPROD-1398632

PATIENT
  Sex: Male

DRUGS (4)
  1. OZEMPIC [Suspect]
     Active Substance: SEMAGLUTIDE
     Indication: Product used for unknown indication
  2. LANTUS [Suspect]
     Active Substance: INSULIN GLARGINE
  3. LANTUS [Suspect]
     Active Substance: INSULIN GLARGINE
  4. LANTUS [Suspect]
     Active Substance: INSULIN GLARGINE
     Indication: Product used for unknown indication

REACTIONS (3)
  - Increased appetite [Unknown]
  - Weight decreased [Unknown]
  - Blood glucose increased [Unknown]
